FAERS Safety Report 25174626 (Version 1)
Quarter: 2025Q2

REPORT INFORMATION
  Report Type: Spontaneous
  Country: GB (occurrence: GB)
  Receive Date: 20250408
  Receipt Date: 20250408
  Transmission Date: 20250717
  Serious: Yes (Hospitalization, Disabling, Other)
  Sender: DAIICHI
  Company Number: None

PATIENT
  Age: 79 Year
  Sex: Male
  Weight: 77 kg

DRUGS (6)
  1. EDOXABAN [Suspect]
     Active Substance: EDOXABAN
     Indication: Atrial fibrillation
     Dosage: 30 MG, QD
     Route: 065
     Dates: start: 20250305
  2. SIMVASTATIN [Concomitant]
     Active Substance: SIMVASTATIN
     Indication: Product used for unknown indication
     Route: 065
     Dates: start: 20050714
  3. MESALAMINE [Concomitant]
     Active Substance: MESALAMINE
     Indication: Colitis ulcerative
     Route: 065
     Dates: start: 19991213
  4. OMEPRAZOLE [Concomitant]
     Active Substance: OMEPRAZOLE
     Indication: Product used for unknown indication
     Route: 065
     Dates: start: 20190625
  5. MIRTAZAPINE [Concomitant]
     Active Substance: MIRTAZAPINE
     Indication: Product used for unknown indication
     Route: 065
     Dates: start: 20200622
  6. BISOPROLOL [Concomitant]
     Active Substance: BISOPROLOL
     Indication: Adverse drug reaction
     Route: 065
     Dates: start: 20240110

REACTIONS (1)
  - Loss of consciousness [Recovered/Resolved]

NARRATIVE: CASE EVENT DATE: 20250311
